FAERS Safety Report 6074823-X (Version None)
Quarter: 2009Q1

REPORT INFORMATION
  Report Type: 
  Country: None (occurrence: None)
  Receive Date: 20090210
  Receipt Date: 20090210
  Transmission Date: 20090719
  Serious: No
  Sender: FDA-Public Use
  Company Number: None

PATIENT
  Sex: Female
  Weight: 81.1939 kg

DRUGS (1)
  1. BONIVA [Suspect]
     Indication: OSTEOPENIA
     Dosage: 1 TABLET 1 X AMONTH PO
     Route: 048
     Dates: start: 20090206, end: 20090206

REACTIONS (3)
  - ABDOMINAL PAIN UPPER [None]
  - MALAISE [None]
  - PAIN [None]
